FAERS Safety Report 17425311 (Version 1)
Quarter: 2020Q1

REPORT INFORMATION
  Report Type: Spontaneous
  Country: BR (occurrence: BR)
  Receive Date: 20200218
  Receipt Date: 20200218
  Transmission Date: 20200409
  Serious: Yes (Other)
  Sender: FDA-Public Use
  Company Number: BR-TORRENT-00005237

PATIENT
  Age: 67 Year
  Sex: Female
  Weight: 42 kg

DRUGS (3)
  1. LAMITOR CD [Suspect]
     Active Substance: LAMOTRIGINE
     Indication: DEPRESSION
     Dosage: ONE TABLET IN THE MORNING
     Route: 048
     Dates: start: 2019
  2. RIVOTRIL [Concomitant]
     Active Substance: CLONAZEPAM
     Indication: ANXIETY
     Dosage: ONE TABLET DAILY, 20 OR 22 YEARS AGO (1998 OR 2000)
     Route: 048
  3. FLUXENE [Suspect]
     Active Substance: FLUOXETINE HYDROCHLORIDE
     Indication: DEPRESSION
     Dosage: ONE TABLET DAILY
     Route: 048
     Dates: start: 201811

REACTIONS (5)
  - Cough [Not Recovered/Not Resolved]
  - Off label use [Not Recovered/Not Resolved]
  - Medication error [Unknown]
  - Choking [Not Recovered/Not Resolved]
  - Insomnia [Not Recovered/Not Resolved]

NARRATIVE: CASE EVENT DATE: 2019
